FAERS Safety Report 6679503-5 (Version None)
Quarter: 2010Q2

REPORT INFORMATION
  Report Type: 
  Country: None (occurrence: None)
  Receive Date: 20100413
  Receipt Date: 20100331
  Transmission Date: 20101027
  Serious: Yes (Other)
  Sender: FDA-Public Use
  Company Number: PHEH2010US03341

PATIENT
  Sex: Female
  Weight: 80 kg

DRUGS (5)
  1. RECLAST [Suspect]
     Indication: OSTEOPOROSIS
     Dosage: 5 MG
     Route: 042
     Dates: start: 20100218
  2. ACE INHIBITORS AND DIURETICS [Concomitant]
  3. VITAMIN D3 [Concomitant]
  4. CALCIUM [Concomitant]
  5. ANTIMICROBIALS [Concomitant]

REACTIONS (7)
  - BLOOD ALBUMIN ABNORMAL [None]
  - BLOOD CREATININE INCREASED [None]
  - BLOOD PRESSURE DIASTOLIC DECREASED [None]
  - BLOOD UREA INCREASED [None]
  - MYALGIA [None]
  - RENAL FAILURE [None]
  - RENAL FAILURE ACUTE [None]
